FAERS Safety Report 7374485 (Version 4)
Quarter: 2012Q4

REPORT INFORMATION
  Report Type: 
  Country: US (occurrence: US)
  Receive Date: 20100503
  Receipt Date: 20121127
  Transmission Date: 20130627
  Serious: No
  Sender: FDA-Public Use
  Company Number: US-ASTRAZENECA-2009UW06552

PATIENT
  Age: 58 Year
  Sex: Female

DRUGS (1)
  1. NEXIUM [Suspect]
     Route: 048

REACTIONS (12)
  - Throat irritation [Unknown]
  - Pain [Unknown]
  - Stress [Unknown]
  - Dyspepsia [Unknown]
  - Gastrooesophageal reflux disease [Unknown]
  - Pharyngeal mass [Unknown]
  - Dysgeusia [Unknown]
  - Headache [Unknown]
  - Depressed mood [Unknown]
  - Malaise [Unknown]
  - Drug effect decreased [Unknown]
  - Drug dose omission [Unknown]
